FAERS Safety Report 9806395 (Version 1)
Quarter: 2014Q1

REPORT INFORMATION
  Report Type: Spontaneous
  Country: US (occurrence: US)
  Receive Date: 20140109
  Receipt Date: 20140109
  Transmission Date: 20141002
  Serious: Yes (Death, Hospitalization)
  Sender: FDA-Public Use
  Company Number: US-BAYER-2014-003061

PATIENT
  Age: 86 Year
  Sex: Male
  Weight: 78 kg

DRUGS (3)
  1. BAYER GENUINE ASPIRIN ORIGINAL STRENGTH [Suspect]
     Indication: ISCHAEMIC HEART DISEASE PROPHYLAXIS
     Dosage: 1 DF, QD
     Route: 048
     Dates: end: 20120917
  2. VITAMIN E [Concomitant]
  3. DIOVAN [Concomitant]
     Dosage: UNK

REACTIONS (6)
  - Cardiogenic shock [Fatal]
  - Atrioventricular block [None]
  - Abdominal pain upper [None]
  - Constipation [None]
  - Blood pressure decreased [None]
  - Chest pain [None]
